FAERS Safety Report 5153335-1 (Version None)
Quarter: 2006Q4

REPORT INFORMATION
  Report Type: 
  Country: None (occurrence: None)
  Receive Date: 20061114
  Receipt Date: 20061031
  Transmission Date: 20070319
  Serious: Yes (Hospitalization)
  Sender: FDA-Public Use
  Company Number: 2006SP005703

PATIENT
  Age: 82 Year
  Sex: Female

DRUGS (14)
  1. INTEGRILIN [Suspect]
     Indication: ACUTE CORONARY SYNDROME
     Dosage: IV
     Route: 042
     Dates: start: 20060310, end: 20060310
  2. DI-ANTALVIC (NO PREF. NAME) [Suspect]
     Indication: DRUG USE FOR UNKNOWN INDICATION
     Dosage: 6 DF; PO
     Route: 048
     Dates: start: 20060310, end: 20060313
  3. INIPOMP (PANTOPRAZOLE) [Suspect]
     Indication: DRUG USE FOR UNKNOWN INDICATION
     Dosage: 20 MG; QD; PO
     Route: 048
     Dates: start: 20060309, end: 20060313
  4. CLOPIDOGREL [Concomitant]
  5. GLICLAZIDE [Concomitant]
  6. PERINDOPRIL ERBUMINE [Concomitant]
  7. VASTEN [Concomitant]
  8. ISOPTIN [Concomitant]
  9. PULMICORT [Concomitant]
  10. FORADIL [Concomitant]
  11. LOVENOX [Concomitant]
  12. ASPIRIN [Concomitant]
  13. PACLITAXEL [Concomitant]
  14. HEXABRIX [Concomitant]

REACTIONS (2)
  - CORONARY ARTERY THROMBOSIS [None]
  - TOXIC SKIN ERUPTION [None]
